FAERS Safety Report 10222276 (Version 1)
Quarter: 2014Q2

REPORT INFORMATION
  Report Type: Spontaneous
  Country: CN (occurrence: CN)
  Receive Date: 20140606
  Receipt Date: 20140606
  Transmission Date: 20141212
  Serious: Yes (Hospitalization)
  Sender: FDA-Public Use
  Company Number: CN-GLAXOSMITHKLINE-B1000571A

PATIENT
  Age: 66 Year
  Sex: Male
  Weight: 52 kg

DRUGS (2)
  1. LAMICTAL [Suspect]
     Indication: EPILEPSY
     Dosage: 50MG TWICE PER DAY
     Route: 048
     Dates: start: 20130709, end: 20130816
  2. VALPROATE SODIUM [Concomitant]
     Indication: EPILEPSY
     Route: 065

REACTIONS (16)
  - Erythema multiforme [Recovering/Resolving]
  - Rash papular [Recovering/Resolving]
  - Pruritus [Recovering/Resolving]
  - Rash [Recovering/Resolving]
  - Oral disorder [Recovering/Resolving]
  - Ulcer [Recovering/Resolving]
  - Pain [Recovering/Resolving]
  - Decreased appetite [Recovering/Resolving]
  - Pyrexia [Recovering/Resolving]
  - Chills [Recovering/Resolving]
  - Rash maculo-papular [Recovering/Resolving]
  - Rash papular [Recovering/Resolving]
  - Oral mucosa erosion [Recovering/Resolving]
  - Mucosal ulceration [Recovering/Resolving]
  - Hepatic function abnormal [Unknown]
  - Pigmentation disorder [Unknown]
